FAERS Safety Report 5159543-8 (Version None)
Quarter: 2006Q4

REPORT INFORMATION
  Report Type: 
  Country: None (occurrence: None)
  Receive Date: 20061129
  Receipt Date: 20061124
  Transmission Date: 20070319
  Serious: Yes (Other)
  Sender: FDA-Public Use
  Company Number: DE-BAYER-200611599BVD

PATIENT

DRUGS (1)
  1. MOXIFLOXACIN HCL [Suspect]
     Indication: UNEVALUABLE EVENT
     Route: 065

REACTIONS (2)
  - DEAFNESS [None]
  - DEAFNESS UNILATERAL [None]
